FAERS Safety Report 5805543-1 (Version None)
Quarter: 2008Q3

REPORT INFORMATION
  Report Type: 
  Country: None (occurrence: None)
  Receive Date: 20080710
  Receipt Date: 20080423
  Transmission Date: 20090109
  Serious: No
  Sender: FDA-Public Use
  Company Number: US-BAYER-200821660NA

PATIENT
  Age: 42 Year
  Sex: Female
  Weight: 79 kg

DRUGS (2)
  1. MIRENA [Suspect]
     Indication: CONTRACEPTION
     Route: 015
     Dates: start: 20051101, end: 20080301
  2. MIRENA [Suspect]
     Route: 015
     Dates: start: 20080423, end: 20080423

REACTIONS (2)
  - COMPLICATION OF DEVICE INSERTION [None]
  - SMEAR CERVIX ABNORMAL [None]
